FAERS Safety Report 10854177 (Version 4)
Quarter: 2015Q4

REPORT INFORMATION
  Report Type: Report from Study
  Country: FR (occurrence: FR)
  Receive Date: 20150223
  Receipt Date: 20151125
  Transmission Date: 20160304
  Serious: Yes (Congenital Anomaly)
  Sender: FDA-Public Use
  Company Number: FR-009507513-1502FRA007679

PATIENT
  Sex: Female
  Weight: 2.42 kg

DRUGS (9)
  1. EPIVIR [Concomitant]
     Active Substance: LAMIVUDINE
     Dosage: 4 MG/KG, Q12H
     Route: 048
     Dates: start: 20150316, end: 20150316
  2. UVEDOSE [Concomitant]
     Active Substance: CHOLECALCIFEROL
     Indication: HYPOVITAMINOSIS
     Dosage: 1 DF, QD
     Dates: start: 20140523
  3. UVESTEROL-D [Concomitant]
     Dosage: 1 DF, QD
     Route: 048
  4. TRUVADA [Suspect]
     Active Substance: EMTRICITABINE\TENOFOVIR DISOPROXIL FUMARATE
     Indication: HIV INFECTION
     Dosage: UNK
  5. FELDENE [Concomitant]
     Active Substance: PIROXICAM
     Dosage: 0.5 DF, QD
     Route: 048
  6. FERROSTRANE [Concomitant]
     Active Substance: SODIUM FEREDETATE
     Dosage: TOTAL DAILY DOSE: 2 ML , 2 TIMES
     Route: 048
  7. LAMIVUDINE. [Concomitant]
     Active Substance: LAMIVUDINE
     Route: 048
  8. RALTEGRAVIR POTASSIUM [Suspect]
     Active Substance: RALTEGRAVIR POTASSIUM
     Indication: HIV INFECTION
     Route: 048
  9. RETROVIR [Concomitant]
     Active Substance: ZIDOVUDINE
     Dosage: 4 MG/KG, Q12H
     Route: 048
     Dates: start: 20150316, end: 20150316

REACTIONS (2)
  - Vaginal disorder [Unknown]
  - Congenital uterine anomaly [Unknown]
